FAERS Safety Report 14626817 (Version 2)
Quarter: 2018Q1

REPORT INFORMATION
  Report Type: Spontaneous
  Country: CH (occurrence: CH)
  Receive Date: 20180312
  Receipt Date: 20180314
  Transmission Date: 20180509
  Serious: Yes (Other)
  Sender: FDA-Public Use
  Company Number: PHHY2018CH037940

PATIENT
  Age: 83 Year
  Sex: Male

DRUGS (3)
  1. NITRODERM [Suspect]
     Active Substance: NITROGLYCERIN
     Indication: HYPERTENSION
     Route: 065
  2. EXELON [Suspect]
     Active Substance: RIVASTIGMINE TARTRATE
     Indication: DEMENTIA
     Dosage: UNK
     Route: 048
     Dates: start: 20180107
  3. EXELON [Suspect]
     Active Substance: RIVASTIGMINE TARTRATE
     Dosage: 6 MG, UNK
     Route: 062

REACTIONS (9)
  - Retching [Recovering/Resolving]
  - Incorrect route of drug administration [Unknown]
  - Productive cough [Recovering/Resolving]
  - Fall [Recovering/Resolving]
  - Panic reaction [Recovering/Resolving]
  - Sinus pain [Unknown]
  - Tremor [Recovering/Resolving]
  - Choking [Recovering/Resolving]
  - Hypertension [Recovering/Resolving]

NARRATIVE: CASE EVENT DATE: 20180107
